FAERS Safety Report 5586014-7 (Version None)
Quarter: 2008Q1

REPORT INFORMATION
  Report Type: 
  Country: None (occurrence: None)
  Receive Date: 20080104
  Receipt Date: 20071219
  Transmission Date: 20080703
  Serious: Yes (Hospitalization)
  Sender: FDA-Public Use
  Company Number: 2007US003041

PATIENT
  Age: 10 Year
  Sex: Female

DRUGS (4)
  1. PROGRAF [Suspect]
     Indication: RENAL TRANSPLANT
     Dosage: 8 MG, UID/QD, ORAL
     Route: 048
     Dates: start: 20071019, end: 20071206
  2. PROGRAF [Suspect]
  3. MYFORTIC [Concomitant]
  4. PREDNISOLONE ACETATE [Concomitant]

REACTIONS (3)
  - DRUG LEVEL DECREASED [None]
  - KIDNEY TRANSPLANT REJECTION [None]
  - THROMBOSIS [None]
